FAERS Safety Report 15988796 (Version 4)
Quarter: 2019Q2

REPORT INFORMATION
  Report Type: Spontaneous
  Country: JP (occurrence: JP)
  Receive Date: 20190221
  Receipt Date: 20190622
  Transmission Date: 20190711
  Serious: Yes (Hospitalization, Other)
  Sender: FDA-Public Use
  Company Number: JP-ABBVIE-19P-087-2675185-00

PATIENT
  Age: 78 Year
  Sex: Male
  Weight: 72.8 kg

DRUGS (1)
  1. LEUPLIN SR [Suspect]
     Active Substance: LEUPROLIDE ACETATE
     Indication: PROSTATE CANCER
     Dosage: 11.25 MILLIGRAM, Q3MONTHS
     Route: 058
     Dates: start: 20180110, end: 20190119

REACTIONS (11)
  - Injection site induration [Unknown]
  - Injection site induration [Unknown]
  - Needle track marks [Unknown]
  - Inadequate aseptic technique in use of product [Unknown]
  - Injection site induration [Recovering/Resolving]
  - Cellulitis [Recovering/Resolving]
  - Abscess [Recovering/Resolving]
  - Administration site cellulitis [Recovering/Resolving]
  - Injection site ulcer [Recovering/Resolving]
  - Infection [Unknown]
  - Interstitial lung disease [Unknown]

NARRATIVE: CASE EVENT DATE: 20181010
